FAERS Safety Report 5961114-8 (Version None)
Quarter: 2008Q4

REPORT INFORMATION
  Report Type: 
  Country: None (occurrence: None)
  Receive Date: 20081121
  Receipt Date: 20081112
  Transmission Date: 20090506
  Serious: Yes (Other)
  Sender: FDA-Public Use
  Company Number: GB-JNJFOC-20040104895

PATIENT
  Sex: Female
  Weight: 79.9 kg

DRUGS (6)
  1. REMICADE [Suspect]
     Indication: RHEUMATOID ARTHRITIS
     Route: 042
  2. BENDROFLUAZIDE [Concomitant]
  3. METHOTREXATE [Concomitant]
     Route: 048
  4. FOLIC ACID [Concomitant]
     Route: 048
  5. UNSPECIFIED MEDICATION [Concomitant]
  6. MELOXICAM [Concomitant]

REACTIONS (7)
  - CHEST DISCOMFORT [None]
  - DRUG INEFFECTIVE [None]
  - FEELING HOT [None]
  - INFUSION RELATED REACTION [None]
  - NAUSEA [None]
  - VISION BLURRED [None]
  - VOMITING [None]
